FAERS Safety Report 11777814 (Version 1)
Quarter: 2015Q4

REPORT INFORMATION
  Report Type: Spontaneous
  Country: US (occurrence: US)
  Receive Date: 20151125
  Receipt Date: 20151125
  Transmission Date: 20160304
  Serious: Yes (Other)
  Sender: FDA-Public Use
  Company Number: US-THE MEDICINES COMPANY-US-MDCO-15-00013

PATIENT
  Age: 71 Year
  Sex: Female
  Weight: 84.3 kg

DRUGS (2)
  1. ANGIOMAX [Suspect]
     Active Substance: BIVALIRUDIN
     Dosage: NOT REPORTED
     Route: 041
  2. ANGIOMAX [Suspect]
     Active Substance: BIVALIRUDIN
     Indication: PERCUTANEOUS CORONARY INTERVENTION
     Dosage: NOT REPORTED
     Route: 040

REACTIONS (1)
  - Vascular stent thrombosis [Unknown]
